FAERS Safety Report 9187385 (Version 3)
Quarter: 2013Q2

REPORT INFORMATION
  Report Type: Spontaneous
  Country: US (occurrence: US)
  Receive Date: 20130325
  Receipt Date: 20130411
  Transmission Date: 20140414
  Serious: Yes (Other)
  Sender: FDA-Public Use
  Company Number: US-RB-038622-12

PATIENT
  Age: 30 Year
  Sex: Female

DRUGS (6)
  1. SUBUTEX [Suspect]
     Indication: DRUG DEPENDENCE
     Dosage: UP TO 24 MG/DAILY
     Route: 065
  2. SUBUTEX [Suspect]
     Route: 065
  3. GENERIC BUPRENORPHINE [Suspect]
     Indication: PRODUCT USED FOR UNKNOWN INDICATION
     Dosage: UNKNOWN DOSING DETAILS
     Route: 060
     Dates: start: 20120129
  4. KLONOPIN [Suspect]
     Indication: ANXIETY
     Dosage: UP TO 3 TIMES A DAY
     Route: 065
  5. NICOTINE PATCH [Suspect]
     Indication: TOBACCO USER
     Route: 065
  6. PVN [Concomitant]
     Indication: PREGNANCY
     Dosage: DOSING DETAILS NOT PROVIDED
     Route: 065

REACTIONS (2)
  - Exposure during pregnancy [Recovered/Resolved]
  - Premature delivery [Recovered/Resolved]
